FAERS Safety Report 8289693-9 (Version None)
Quarter: 2012Q2

REPORT INFORMATION
  Report Type: 
  Country: None (occurrence: None)
  Receive Date: 20120417
  Receipt Date: 20120329
  Transmission Date: 20120825
  Serious: Yes (Death, Hospitalization)
  Sender: FDA-Public Use
  Company Number: US-BAYER-2011-049666

PATIENT
  Age: 25 Year
  Sex: Female
  Weight: 84 kg

DRUGS (3)
  1. YAZ [Suspect]
     Indication: CONTRACEPTION
     Dosage: UNK
     Dates: start: 20090323, end: 20090616
  2. TYLENOL ALLERGY SINUS [Concomitant]
     Dosage: AS NEEDED
     Route: 048
  3. CLARITIN-D [Concomitant]
     Dosage: 1 TABLET AS NEEDED
     Route: 048

REACTIONS (14)
  - SHOCK [None]
  - PAIN [None]
  - GENERAL PHYSICAL HEALTH DETERIORATION [None]
  - DYSPNOEA [None]
  - DEEP VEIN THROMBOSIS [None]
  - SYNCOPE [None]
  - EMOTIONAL DISTRESS [None]
  - ANXIETY [None]
  - HYPOXIC-ISCHAEMIC ENCEPHALOPATHY [None]
  - UNRESPONSIVE TO STIMULI [None]
  - CARDIAC ARREST [None]
  - COMA [None]
  - PULMONARY EMBOLISM [None]
  - VENTRICULAR TACHYCARDIA [None]
